FAERS Safety Report 21578737 (Version 1)
Quarter: 2022Q4

REPORT INFORMATION
  Report Type: Spontaneous
  Country: HR (occurrence: HR)
  Receive Date: 20221110
  Receipt Date: 20221110
  Transmission Date: 20230113
  Serious: Yes (Other)
  Sender: FDA-Public Use
  Company Number: None

PATIENT
  Sex: Female

DRUGS (4)
  1. NEBIVOLOL [Suspect]
     Active Substance: NEBIVOLOL
     Indication: Product used for unknown indication
     Dosage: FREQUENCY TIME : 1 DAY, DURATION: 1 DAY, UNIT DOSE: 55 MG
     Route: 065
     Dates: start: 20220919, end: 20220919
  2. NORMABEL [Suspect]
     Active Substance: DIAZEPAM
     Indication: Product used for unknown indication
     Dosage: FREQUENCY TIME : 1 DAY, DURATION: 1 DAY, UNIT DOSE: 50 MG
     Route: 065
     Dates: start: 20220919, end: 20220919
  3. LEVOTHYROXINE SODIUM [Suspect]
     Active Substance: LEVOTHYROXINE SODIUM
     Indication: Product used for unknown indication
     Dosage: FREQUENCY TIME : 1 DAY, DURATION: 1 DAY, UNIT DOSE: 1250 MCG
     Route: 065
     Dates: start: 20220919, end: 20220919
  4. MIRTAZAPINE [Suspect]
     Active Substance: MIRTAZAPINE
     Indication: Product used for unknown indication
     Dosage: UNK, DURATION: 1 DAY
     Route: 065
     Dates: start: 20220919, end: 20220919

REACTIONS (3)
  - Somnolence [Unknown]
  - Intentional overdose [Unknown]
  - Suicide attempt [Unknown]

NARRATIVE: CASE EVENT DATE: 20220919
